FAERS Safety Report 12216136 (Version 1)
Quarter: 2016Q1

REPORT INFORMATION
  Report Type: Spontaneous
  Country: US (occurrence: US)
  Receive Date: 20160329
  Receipt Date: 20160329
  Transmission Date: 20160526
  Serious: Yes (Other)
  Sender: FDA-Public Use
  Company Number: US-ASTRAZENECA-2016SE31425

PATIENT
  Age: 71 Year
  Sex: Female
  Weight: 68 kg

DRUGS (6)
  1. TUDORZA PRESSAIR [Suspect]
     Active Substance: ACLIDINIUM BROMIDE
     Indication: CHRONIC OBSTRUCTIVE PULMONARY DISEASE
     Dosage: 400 MCG, 2 INHALATIONS TWICE A DAY
     Route: 055
     Dates: start: 2014
  2. TUDORZA PRESSAIR [Suspect]
     Active Substance: ACLIDINIUM BROMIDE
     Indication: CHRONIC OBSTRUCTIVE PULMONARY DISEASE
     Dosage: 400 MCG, 1 PUFF TWICE A DAY
     Route: 055
     Dates: start: 201409
  3. OXYGEN. [Concomitant]
     Active Substance: OXYGEN
     Dosage: 3 L/MIN CONTINUOUSLY
     Route: 055
     Dates: start: 2011
  4. DULERA [Concomitant]
     Active Substance: FORMOTEROL FUMARATE DIHYDRATE\MOMETASONE FUROATE
     Route: 055
  5. OXYGEN. [Concomitant]
     Active Substance: OXYGEN
     Route: 055
  6. PROAIR HFA [Concomitant]
     Active Substance: ALBUTEROL SULFATE
     Route: 055

REACTIONS (10)
  - Gait disturbance [Unknown]
  - Product quality issue [Unknown]
  - Lung disorder [Unknown]
  - Feeling jittery [Recovered/Resolved]
  - Hearing disability [Unknown]
  - Pneumonia [Recovered/Resolved]
  - Pulmonary mass [Unknown]
  - Pleurisy [Unknown]
  - Tremor [Recovered/Resolved]
  - Pyrexia [Unknown]

NARRATIVE: CASE EVENT DATE: 2014
